FAERS Safety Report 12232415 (Version 1)
Quarter: 2016Q2

REPORT INFORMATION
  Report Type: Report from Study
  Country: AU (occurrence: AU)
  Receive Date: 20160401
  Receipt Date: 20160401
  Transmission Date: 20160815
  Serious: Yes (Hospitalization)
  Sender: FDA-Public Use
  Company Number: AU-KADMON PHARMACEUTICALS, LLC-KAD201501-000002

PATIENT
  Age: 64 Year
  Sex: Female

DRUGS (5)
  1. SPIRONOLACTONE. [Concomitant]
     Active Substance: SPIRONOLACTONE
  2. PROPRANOLOL [Concomitant]
     Active Substance: PROPRANOLOL\PROPRANOLOL HYDROCHLORIDE
     Indication: CARDIAC DISORDER
  3. RIBAVIRIN. [Suspect]
     Active Substance: RIBAVIRIN
     Indication: HEPATITIS C
     Dosage: TABLET
     Route: 048
     Dates: start: 20141119, end: 201501
  4. OMBITASVIR/PARITAPREVIR/RITONAVIR [Suspect]
     Active Substance: OMBITASVIR\PARITAPREVIR\RITONAVIR
     Indication: HEPATITIS C
     Dosage: TABLET
     Route: 048
     Dates: start: 20141119, end: 201501
  5. DASABUVIR [Suspect]
     Active Substance: DASABUVIR
     Indication: HEPATITIS C
     Dosage: TABLET
     Route: 048
     Dates: start: 20141119, end: 201501

REACTIONS (9)
  - Adverse drug reaction [Unknown]
  - Hyperbilirubinaemia [Unknown]
  - Pancreatitis [Unknown]
  - Abdominal pain [Unknown]
  - Bile duct obstruction [Unknown]
  - Hepatic enzyme increased [Unknown]
  - Cholelithiasis [Unknown]
  - Jaundice [Recovering/Resolving]
  - Hepatomegaly [Unknown]

NARRATIVE: CASE EVENT DATE: 201412
